FAERS Safety Report 23642783 (Version 1)
Quarter: 2024Q1

REPORT INFORMATION
  Report Type: Spontaneous
  Country: US (occurrence: None)
  Receive Date: 20240315
  Receipt Date: 20240315
  Transmission Date: 20240409
  Serious: Yes (unspecified)
  Sender: FDA-Public Use
  Company Number: None

PATIENT
  Age: 75 Year
  Sex: Female

DRUGS (1)
  1. POMALYST [Suspect]
     Active Substance: POMALIDOMIDE
     Indication: Plasma cell myeloma
     Dosage: FREQUENCY : DAILY;?
     Route: 048
     Dates: start: 20240308

REACTIONS (6)
  - Chest pain [None]
  - Dyspnoea [None]
  - Dyspnoea [None]
  - Peripheral swelling [None]
  - Brain natriuretic peptide increased [None]
  - Cardiac failure congestive [None]

NARRATIVE: CASE EVENT DATE: 20240314
